FAERS Safety Report 5024685-4 (Version None)
Quarter: 2006Q2

REPORT INFORMATION
  Report Type: 
  Country: None (occurrence: None)
  Receive Date: 20060613
  Receipt Date: 20050328
  Transmission Date: 20061013
  Serious: No
  Sender: FDA-Public Use
  Company Number: US-BRISTOL-MYERS SQUIBB COMPANY-12912671

PATIENT
  Sex: Female

DRUGS (1)
  1. CORGARD [Suspect]

REACTIONS (1)
  - CHEST DISCOMFORT [None]
